FAERS Safety Report 9988318 (Version 2)
Quarter: 2014Q1

REPORT INFORMATION
  Report Type: Report from Study
  Country: TR (occurrence: TR)
  Receive Date: 20140310
  Receipt Date: 20140310
  Transmission Date: 20141002
  Serious: Yes (Life-Threatening, Hospitalization)
  Sender: FDA-Public Use
  Company Number: TR-PFIZER INC-2014035032

PATIENT
  Age: 65 Year
  Sex: Female
  Weight: 96 kg

DRUGS (7)
  1. BOSUTINIB [Suspect]
     Indication: CHRONIC MYELOID LEUKAEMIA
     Dosage: 500 MG, 1X/DAY
     Route: 048
     Dates: start: 20090508, end: 20140204
  2. ACETYLSALICYLIC ACID [Concomitant]
     Indication: DIABETES MELLITUS
     Dosage: 100 MG, 1X/DAY
     Dates: start: 20100413
  3. ACETYLSALICYLIC ACID [Concomitant]
     Indication: HYPERTENSION
  4. INSULIN LISPRO [Concomitant]
     Indication: DIABETES MELLITUS
     Dosage: 24 IU, 2X/DAY
     Dates: start: 20100705
  5. INSULIN LISPRO [Concomitant]
     Dosage: 14 IU, 2X/DAY
     Dates: start: 20100705
  6. BENIDIPINE HYDROCHLORIDE [Concomitant]
     Indication: HYPERTENSION
     Dosage: 8 MG, 1X/DAY
     Dates: start: 20100925
  7. TELMISARTAN [Concomitant]
     Indication: HYPERTENSION
     Dosage: 12.5 MG, 1X/DAY
     Dates: start: 20120222

REACTIONS (3)
  - Renal failure acute [Unknown]
  - Pleural effusion [Unknown]
  - Pericardial effusion [Unknown]
